FAERS Safety Report 5288550-X (Version None)
Quarter: 2007Q2

REPORT INFORMATION
  Report Type: 
  Country: None (occurrence: None)
  Receive Date: 20070405
  Receipt Date: 20070223
  Transmission Date: 20071010
  Serious: No
  Sender: FDA-Public Use
  Company Number: US-JNJFOC-20070206068

PATIENT
  Sex: Female
  Weight: 54.89 kg

DRUGS (1)
  1. INVEGA [Suspect]
     Indication: SCHIZOPHRENIA
     Route: 048

REACTIONS (4)
  - DRY MOUTH [None]
  - FATIGUE [None]
  - FIBROMYALGIA [None]
  - WEIGHT INCREASED [None]
